FAERS Safety Report 11105881 (Version 1)
Quarter: 2015Q2

REPORT INFORMATION
  Report Type: Spontaneous
  Country: US (occurrence: None)
  Receive Date: 20150511
  Receipt Date: 20150511
  Transmission Date: 20150821
  Serious: Yes (Other)
  Sender: FDA-Public Use
  Company Number: None

PATIENT
  Sex: Female

DRUGS (1)
  1. DULOXETINE 90MG/DAY [Suspect]
     Active Substance: DULOXETINE

REACTIONS (2)
  - Pain [None]
  - Suicidal ideation [None]

NARRATIVE: CASE EVENT DATE: 20150219
